FAERS Safety Report 25751083 (Version 1)
Quarter: 2025Q3

REPORT INFORMATION
  Report Type: Spontaneous
  Country: US (occurrence: None)
  Receive Date: 20250830
  Receipt Date: 20250830
  Transmission Date: 20251020
  Serious: Yes (Hospitalization, Other)
  Sender: FDA-CTU
  Company Number: None

PATIENT
  Age: 18 Year
  Sex: Female
  Weight: 61.65 kg

DRUGS (4)
  1. DULOXETINE [Suspect]
     Active Substance: DULOXETINE
     Indication: Anxiety
     Route: 048
     Dates: start: 20160104
  2. DULOXETINE [Suspect]
     Active Substance: DULOXETINE
     Indication: Depression
  3. BUSPIRONE [Concomitant]
     Active Substance: BUSPIRONE HYDROCHLORIDE
  4. HYDROXYZINE [Concomitant]
     Active Substance: HYDROXYZINE HYDROCHLORIDE

REACTIONS (17)
  - Product use issue [None]
  - Product dose omission in error [None]
  - Withdrawal syndrome [None]
  - Crying [None]
  - Anger [None]
  - Suicidal ideation [None]
  - Memory impairment [None]
  - Drug ineffective [None]
  - Therapy change [None]
  - Nausea [None]
  - Fatigue [None]
  - Irritability [None]
  - Mood swings [None]
  - Self-destructive behaviour [None]
  - Emotional disorder [None]
  - Fear [None]
  - Refusal of treatment by patient [None]

NARRATIVE: CASE EVENT DATE: 20190124
